FAERS Safety Report 24050988 (Version 3)
Quarter: 2024Q3

REPORT INFORMATION
  Report Type: Report from Study
  Country: KR (occurrence: KR)
  Receive Date: 20240704
  Receipt Date: 20240812
  Transmission Date: 20241017
  Serious: Yes (Hospitalization, Other)
  Sender: EMD SERONO INC
  Company Number: KR-Merck Healthcare KGaA-2024035522

PATIENT
  Sex: Female

DRUGS (1)
  1. REBIF [Suspect]
     Active Substance: INTERFERON BETA-1A
     Indication: Product used for unknown indication
     Dates: start: 20240208

REACTIONS (4)
  - Eye symptom [Unknown]
  - Symptom recurrence [Unknown]
  - Optic atrophy [Unknown]
  - Gastroenteritis salmonella [Unknown]
